FAERS Safety Report 13943731 (Version 2)
Quarter: 2017Q3

REPORT INFORMATION
  Report Type: Spontaneous
  Country: US (occurrence: US)
  Receive Date: 20170907
  Receipt Date: 20170926
  Transmission Date: 20171128
  Serious: Yes (Other)
  Sender: FDA-Public Use
  Company Number: US-JNJCP-30000403898

PATIENT
  Sex: Female
  Weight: 104 kg

DRUGS (2)
  1. LISINOPRIL. [Concomitant]
     Active Substance: LISINOPRIL
     Indication: BLOOD PRESSURE ABNORMAL
     Dosage: ONE PILL A DAY SINCE 10 YEARS
  2. JOHNSONS BABY PURE CORNSTARCH MEDICATED [Suspect]
     Active Substance: ZINC OXIDE
     Dosage: SPRINKLE IT ON A LITTLE BIT ONE TIME A DAY
     Route: 061

REACTIONS (1)
  - Ovarian cancer [Not Recovered/Not Resolved]
